FAERS Safety Report 14570220 (Version 1)
Quarter: 2018Q1

REPORT INFORMATION
  Report Type: Spontaneous
  Country: US (occurrence: US)
  Receive Date: 20180226
  Receipt Date: 20180226
  Transmission Date: 20180509
  Serious: Yes (Other)
  Sender: FDA-Public Use
  Company Number: US-AMGEN-USASP2018024823

PATIENT
  Sex: Female
  Weight: 58.6 kg

DRUGS (9)
  1. HUMIRA [Concomitant]
     Active Substance: ADALIMUMAB
     Indication: PRODUCT USED FOR UNKNOWN INDICATION
     Dosage: UNK
     Route: 065
  2. JUXTAPID [Concomitant]
     Active Substance: LOMITAPIDE MESYLATE
     Indication: BLOOD CHOLESTEROL INCREASED
     Dosage: 5 MG, QD
     Route: 048
     Dates: start: 2015
  3. IRON [Concomitant]
     Active Substance: IRON
     Indication: RHEUMATOID ARTHRITIS
     Dosage: 27 MG, QD
     Route: 048
  4. VITAMIN E [Concomitant]
     Active Substance: .ALPHA.-TOCOPHEROL
     Dosage: 400 IU, QD
     Route: 048
     Dates: start: 2015
  5. OMEGA 3 6 9 [Concomitant]
     Active Substance: FISH OIL
     Dosage: UNK UNK, QD
     Route: 048
     Dates: start: 2015
  6. ENBREL [Suspect]
     Active Substance: ETANERCEPT
     Indication: PRODUCT USED FOR UNKNOWN INDICATION
     Dosage: UNK
     Route: 065
     Dates: start: 2000
  7. XELJANZ XR [Suspect]
     Active Substance: TOFACITINIB CITRATE
     Indication: RHEUMATOID ARTHRITIS
     Dosage: 11 MG, QD
     Route: 048
     Dates: start: 201712
  8. PRALUENT [Concomitant]
     Active Substance: ALIROCUMAB
     Indication: BLOOD CHOLESTEROL INCREASED
     Dosage: 150 MG, (EVERY TWO WEEKS)
     Dates: start: 2016
  9. CALTRATE 600+D [Concomitant]
     Indication: RHEUMATOID ARTHRITIS
     Dosage: UNK UNK, QD
     Route: 048

REACTIONS (4)
  - Headache [Not Recovered/Not Resolved]
  - Sinus disorder [Unknown]
  - Middle ear effusion [Unknown]
  - Rheumatoid arthritis [Unknown]

NARRATIVE: CASE EVENT DATE: 2018
